FAERS Safety Report 7232786-5 (Version None)
Quarter: 2011Q1

REPORT INFORMATION
  Report Type: 
  Country: None (occurrence: None)
  Receive Date: 20110119
  Receipt Date: 20101201
  Transmission Date: 20110831
  Serious: Yes (Hospitalization)
  Sender: FDA-Public Use
  Company Number: IE-US-EMD SERONO, INC.-7028255

PATIENT
  Sex: Male

DRUGS (1)
  1. REBIF [Suspect]
     Indication: RELAPSING-REMITTING MULTIPLE SCLEROSIS
     Dates: start: 20040914

REACTIONS (5)
  - MOBILITY DECREASED [None]
  - COUGH [None]
  - IMPAIRED WORK ABILITY [None]
  - FEELING ABNORMAL [None]
  - COGNITIVE DISORDER [None]
